FAERS Safety Report 7429630-X (Version None)
Quarter: 2011Q2

REPORT INFORMATION
  Report Type: 
  Country: None (occurrence: None)
  Receive Date: 20110421
  Receipt Date: 20110414
  Transmission Date: 20111010
  Serious: Yes (Life-Threatening)
  Sender: FDA-Public Use
  Company Number: B0714403A

PATIENT
  Sex: Male

DRUGS (3)
  1. RYTHMOL [Suspect]
     Indication: TACHYCARDIA
     Dosage: 300MG PER DAY
     Dates: start: 20090914, end: 20110119
  2. RYTHMOL [Suspect]
     Dosage: 300MG TWICE PER DAY
     Route: 048
     Dates: start: 20110119, end: 20110201
  3. FUROSEMIDE [Concomitant]
     Dates: start: 20110119

REACTIONS (5)
  - CARDIAC FAILURE [None]
  - CARDIAC ARREST [None]
  - MALAISE [None]
  - CYANOSIS [None]
  - ARRHYTHMIA [None]
